FAERS Safety Report 19627783 (Version 1)
Quarter: 2021Q3

REPORT INFORMATION
  Report Type: Spontaneous
  Country: PL (occurrence: PL)
  Receive Date: 20210729
  Receipt Date: 20210729
  Transmission Date: 20211014
  Serious: Yes (Other)
  Sender: FDA-Public Use
  Company Number: PL-ADVANZ PHARMA-202107005351

PATIENT

DRUGS (4)
  1. MAGNE B6 [Concomitant]
     Active Substance: MAGNESIUM\PYRIDOXINE
     Dosage: UNK
  2. KALIPOZ [Concomitant]
     Active Substance: POTASSIUM CHLORIDE
     Dosage: UNK
  3. ACARD [ACETYLSALICYLIC ACID] [Concomitant]
     Active Substance: ASPIRIN
     Dosage: UNK
  4. ALFUZOSIN [Suspect]
     Active Substance: ALFUZOSIN
     Indication: PROSTATOMEGALY
     Dosage: UNK,  PROLONGED?RELEASE TABLET
     Route: 048

REACTIONS (4)
  - Choking [Unknown]
  - Retching [Unknown]
  - Foreign body in throat [Unknown]
  - Product use complaint [Unknown]
